FAERS Safety Report 8791435 (Version 2)
Quarter: 2012Q4

REPORT INFORMATION
  Report Type: Spontaneous
  Country: FI (occurrence: None)
  Receive Date: 20120912
  Receipt Date: 20120924
  Transmission Date: 20130627
  Serious: Yes (Life-Threatening, Hospitalization)
  Sender: FDA-Public Use
  Company Number: 2012MA010706

PATIENT
  Age: 71 Year
  Sex: Male
  Weight: 68 kg

DRUGS (5)
  1. DONEPEZIL HYDROCHLORIDE [Suspect]
  2. ROCURONIUM BROMIDE [Suspect]
     Dosage: q15m
     Route: 042
  3. GLYCOYRROLATE [Concomitant]
  4. FENTANYL [Concomitant]
  5. PROPOFOL [Concomitant]

REACTIONS (2)
  - Inhibitory drug interaction [None]
  - Drug effect decreased [None]
